FAERS Safety Report 17900963 (Version 1)
Quarter: 2020Q2

REPORT INFORMATION
  Report Type: Spontaneous
  Country: US (occurrence: US)
  Receive Date: 20200616
  Receipt Date: 20200616
  Transmission Date: 20200714
  Serious: Yes (Other)
  Sender: FDA-Public Use
  Company Number: US-GLAXOSMITHKLINE-US2020097322

PATIENT
  Sex: Female

DRUGS (1)
  1. SENSODYNE [Suspect]
     Active Substance: POTASSIUM NITRATE\SODIUM FLUORIDE
     Indication: HYPERAESTHESIA TEETH
     Dosage: UNK

REACTIONS (8)
  - Tooth fracture [Unknown]
  - Pain in jaw [Unknown]
  - Dental caries [Unknown]
  - Swelling face [Unknown]
  - Adverse drug reaction [Unknown]
  - Therapeutic product effect incomplete [Unknown]
  - Tooth disorder [Unknown]
  - Hypoaesthesia oral [Unknown]
